FAERS Safety Report 7503669-8 (Version None)
Quarter: 2011Q2

REPORT INFORMATION
  Report Type: 
  Country: None (occurrence: None)
  Receive Date: 20110518
  Receipt Date: 20110502
  Transmission Date: 20111010
  Serious: Yes (Hospitalization)
  Sender: FDA-Public Use
  Company Number: UCM201105-000010

PATIENT
  Age: 49 Year
  Sex: Female

DRUGS (3)
  1. BISOPROLOL FUMARATE [Suspect]
  2. PREDNISONE TAB [Suspect]
  3. CARBIMAZOLE [Suspect]

REACTIONS (3)
  - HYPERTHYROIDISM [None]
  - THYROIDITIS [None]
  - THYROID CANCER [None]
